FAERS Safety Report 17086614 (Version 1)
Quarter: 2019Q4

REPORT INFORMATION
  Report Type: Spontaneous
  Country: US (occurrence: US)
  Receive Date: 20191128
  Receipt Date: 20191128
  Transmission Date: 20200122
  Serious: No
  Sender: FDA-Public Use
  Company Number: US-HEYL CHEMISCH-PHARMAZEUTISCHE FABRIK-2077284

PATIENT
  Sex: Male

DRUGS (1)
  1. RADIOGARDASE [Suspect]
     Active Substance: FERRIC FERROCYANIDE
     Indication: METAL POISONING
     Route: 048
     Dates: start: 2019, end: 2019

REACTIONS (5)
  - Constipation [Unknown]
  - Drug intolerance [Unknown]
  - Depression [Unknown]
  - Hot flush [Unknown]
  - Insomnia [Unknown]

NARRATIVE: CASE EVENT DATE: 2019
